FAERS Safety Report 6058213-1 (Version None)
Quarter: 2009Q1

REPORT INFORMATION
  Report Type: 
  Country: None (occurrence: None)
  Receive Date: 20090130
  Receipt Date: 20090127
  Transmission Date: 20090719
  Serious: Yes (Hospitalization, Other)
  Sender: FDA-Public Use
  Company Number: CH-JNJFOC-20081106471

PATIENT
  Sex: Female
  Weight: 95 kg

DRUGS (1)
  1. ORTHO EVRA [Suspect]
     Indication: CONTRACEPTION
     Route: 062

REACTIONS (3)
  - GASTROENTERITIS [None]
  - LEUKOCYTOCLASTIC VASCULITIS [None]
  - PYREXIA [None]
